FAERS Safety Report 8535870-9 (Version None)
Quarter: 2012Q3

REPORT INFORMATION
  Report Type: 
  Country: None (occurrence: None)
  Receive Date: 20120725
  Receipt Date: 20120711
  Transmission Date: 20120928
  Serious: Yes (Hospitalization, Other)
  Sender: FDA-Public Use
  Company Number: PHHO2010FR16017

PATIENT
  Sex: Male
  Weight: 85 kg

DRUGS (9)
  1. MYCOPHENOLIC ACID [Suspect]
     Dosage: 350 MG, BID
     Route: 048
     Dates: start: 20110429
  2. PREDNISOLONE [Concomitant]
  3. EUPRESSYL [Concomitant]
     Indication: HYPERTENSION
     Dosage: UNK
     Dates: start: 20110201
  4. PREDNISONE [Suspect]
     Dosage: 10 MG, UNK
     Route: 048
     Dates: start: 20100817
  5. MYCOPHENOLIC ACID [Suspect]
     Indication: RENAL TRANSPLANT
     Dosage: 720 MG, BID
     Route: 048
     Dates: start: 20100812, end: 20110425
  6. ATENOLOL [Concomitant]
     Indication: HYPERTENSION
     Dosage: 100 MG, UNK
     Route: 048
     Dates: start: 20101211
  7. HYPERIUM [Concomitant]
     Indication: HYPERTENSION
     Dosage: 2 MG, UNK
     Route: 048
     Dates: start: 20110107
  8. NEORAL [Suspect]
     Dosage: 75 MG, BID
     Route: 048
     Dates: start: 20100914
  9. NEORAL [Suspect]
     Indication: RENAL TRANSPLANT
     Dosage: 150 MG, BID
     Route: 048
     Dates: start: 20100813, end: 20100913

REACTIONS (5)
  - PYELONEPHRITIS ACUTE [None]
  - CYTOMEGALOVIRUS INFECTION [None]
  - HYDROCELE MALE INFECTED [None]
  - RENAL FAILURE ACUTE [None]
  - INFECTED LYMPHOCELE [None]
